FAERS Safety Report 7516772-3 (Version None)
Quarter: 2011Q2

REPORT INFORMATION
  Report Type: 
  Country: None (occurrence: None)
  Receive Date: 20110601
  Receipt Date: 20110518
  Transmission Date: 20111010
  Serious: Yes (Hospitalization, Other)
  Sender: FDA-Public Use
  Company Number: PHHY2011US43559

PATIENT
  Sex: Female

DRUGS (4)
  1. METFORMIN HCL [Suspect]
     Dosage: 500 MG, BID
  2. ENALAPRIL MALEATE [Suspect]
     Dosage: 10 MG, QD
  3. DIOVAN [Suspect]
     Dosage: 160 MG, BID
  4. AMLODIPINE [Suspect]
     Dosage: 10 MG, QD

REACTIONS (8)
  - RESPIRATORY RATE INCREASED [None]
  - URINARY TRACT INFECTION [None]
  - DYSPNOEA [None]
  - DIZZINESS [None]
  - BLOOD CREATININE INCREASED [None]
  - BLOOD UREA INCREASED [None]
  - SYNCOPE [None]
  - HYPERTENSION [None]
